FAERS Safety Report 8642681 (Version 2)
Quarter: 2014Q1

REPORT INFORMATION
  Report Type: Spontaneous
  Country: US (occurrence: None)
  Receive Date: 20120323
  Receipt Date: 20130305
  Transmission Date: 20141002
  Serious: Yes (Hospitalization)
  Sender: FDA-Public Use
  Company Number: 163-21880-11100478

PATIENT
  Age: 87 Year
  Sex: Female
  Weight: 53.52 kg

DRUGS (4)
  1. REVLIMID [Suspect]
     Indication: CHRONIC LYMPHOCYTIC LEUKAEMIA
     Dosage: 5 MG, MONDAY TO FRIDAY, PO
     Route: 048
     Dates: start: 200911
  2. REVLIMID [Suspect]
     Indication: MYELODYSPLASTIC SYNDROME
     Dosage: 5 MG, MONDAY TO FRIDAY, PO
     Route: 048
     Dates: start: 200911
  3. PLAVIX (CLOPIDOGREL SULFATE) [Concomitant]
  4. ASA (ACETYLSALICYLIC ACID) [Concomitant]

REACTIONS (2)
  - Ischaemic stroke [None]
  - Transient ischaemic attack [None]
